FAERS Safety Report 11662318 (Version 1)
Quarter: 2015Q4

REPORT INFORMATION
  Report Type: Report from Study
  Country: FR (occurrence: FR)
  Receive Date: 20151027
  Receipt Date: 20151027
  Transmission Date: 20160304
  Serious: Yes (Life-Threatening, Hospitalization, Other)
  Sender: FDA-Public Use
  Company Number: FR-ROCHE-1412040

PATIENT
  Age: 52 Year
  Sex: Female

DRUGS (33)
  1. TOCILIZUMAB [Suspect]
     Active Substance: TOCILIZUMAB
     Route: 042
     Dates: start: 20131115
  2. FOLIC ACID. [Concomitant]
     Active Substance: FOLIC ACID
     Route: 065
  3. ESOMEPRAZOLE [Concomitant]
     Active Substance: ESOMEPRAZOLE
     Route: 065
  4. UVEDOSE [Concomitant]
     Active Substance: CHOLECALCIFEROL
     Dosage: 1 DOSE EVERY 2 MONTHS
     Route: 065
  5. TOCILIZUMAB [Suspect]
     Active Substance: TOCILIZUMAB
     Dosage: WITH OUT CORTANCYL.
     Route: 041
     Dates: start: 20120629, end: 20120629
  6. TOCILIZUMAB [Suspect]
     Active Substance: TOCILIZUMAB
     Dosage: WITHOUT CORTANCYL
     Route: 041
     Dates: start: 20130116, end: 20130116
  7. TOCILIZUMAB [Suspect]
     Active Substance: TOCILIZUMAB
     Dosage: 3.51 MG/KG
     Route: 042
     Dates: start: 20140220
  8. TOCILIZUMAB [Suspect]
     Active Substance: TOCILIZUMAB
     Dosage: 4.21 MG/KG
     Route: 042
     Dates: start: 20140320
  9. TOCILIZUMAB [Suspect]
     Active Substance: TOCILIZUMAB
     Indication: RHEUMATOID ARTHRITIS
     Dosage: IN ASSOCIATION WITH CORTANCYL
     Route: 041
     Dates: start: 20120503, end: 20120503
  10. TOCILIZUMAB [Suspect]
     Active Substance: TOCILIZUMAB
     Dosage: WITHOUT CORTANCYL
     Route: 041
     Dates: start: 20121218, end: 20121218
  11. TOCILIZUMAB [Suspect]
     Active Substance: TOCILIZUMAB
     Dosage: WITHOUT CORTANCYL
     Route: 041
     Dates: start: 20130523, end: 20130523
  12. TOCILIZUMAB [Suspect]
     Active Substance: TOCILIZUMAB
     Dosage: 4.14 MG/KG
     Route: 042
     Dates: start: 20140417
  13. METFORMIN [Concomitant]
     Active Substance: METFORMIN HYDROCHLORIDE
     Route: 065
  14. TOCILIZUMAB [Suspect]
     Active Substance: TOCILIZUMAB
     Dosage: WITH OUT CORTANCYL
     Route: 041
     Dates: start: 20120601, end: 20120601
  15. TOCILIZUMAB [Suspect]
     Active Substance: TOCILIZUMAB
     Dosage: WITHOUT CORTANCYL
     Route: 041
     Dates: start: 20121119, end: 20121119
  16. DOLIPRANE [Concomitant]
     Active Substance: ACETAMINOPHEN
     Dosage: AS REQUIRED
     Route: 065
  17. LEVOTHYROX [Concomitant]
     Active Substance: LEVOTHYROXINE
     Dosage: 1 DOSE ONE IN TWO DAYS
     Route: 065
  18. TOCILIZUMAB [Suspect]
     Active Substance: TOCILIZUMAB
     Dosage: WITH OUT CORTANCYL.
     Route: 041
     Dates: start: 20120727, end: 20120727
  19. TOCILIZUMAB [Suspect]
     Active Substance: TOCILIZUMAB
     Dosage: WITH OUT CORTANCYL
     Route: 041
     Dates: start: 20120924, end: 20120924
  20. TOCILIZUMAB [Suspect]
     Active Substance: TOCILIZUMAB
     Dosage: WITHOUT CORTANCYL
     Route: 041
     Dates: start: 20121024, end: 20121024
  21. TOCILIZUMAB [Suspect]
     Active Substance: TOCILIZUMAB
     Dosage: WITHOUT CORTANCYL
     Route: 041
     Dates: start: 20130213, end: 20130213
  22. TOCILIZUMAB [Suspect]
     Active Substance: TOCILIZUMAB
     Dosage: UNSPECIFIED DOSE; WITHOUT CORTANCYL
     Route: 041
     Dates: start: 20130410, end: 20130410
  23. PROPRANOLOL [Concomitant]
     Active Substance: PROPRANOLOL\PROPRANOLOL HYDROCHLORIDE
     Route: 065
  24. LEVOTHYROX [Concomitant]
     Active Substance: LEVOTHYROXINE
     Dosage: 1 DOSE ONE IN TWO DAYS
     Route: 065
  25. TOCILIZUMAB [Suspect]
     Active Substance: TOCILIZUMAB
     Dosage: WITH OUT CORTANCYL.
     Route: 041
     Dates: start: 20120824, end: 20120824
  26. LEVOTHYROX [Concomitant]
     Active Substance: LEVOTHYROXINE
     Dosage: 1 DOSE ONE IN TWO DAYS
     Route: 065
  27. TOCILIZUMAB [Suspect]
     Active Substance: TOCILIZUMAB
     Dosage: WITHOUT CORTANCYL
     Route: 041
     Dates: start: 20130313, end: 20130313
  28. TOCILIZUMAB [Suspect]
     Active Substance: TOCILIZUMAB
     Dosage: 4 MG/KG,
     Route: 042
     Dates: start: 20140515
  29. LOVENOX [Concomitant]
     Active Substance: ENOXAPARIN SODIUM
     Route: 065
  30. TRAMADOL. [Concomitant]
     Active Substance: TRAMADOL
     Dosage: AS REQUIRED
     Route: 065
  31. TOCILIZUMAB [Suspect]
     Active Substance: TOCILIZUMAB
     Dosage: 4 MG/KG
     Route: 042
     Dates: start: 20140611
  32. CORTANCYL [Concomitant]
     Active Substance: PREDNISONE
  33. INDAPAMIDE. [Concomitant]
     Active Substance: INDAPAMIDE
     Route: 065

REACTIONS (9)
  - Pityriasis rosea [Recovered/Resolved]
  - Peripheral venous disease [Unknown]
  - Sepsis [Recovered/Resolved]
  - Hepatocellular injury [Recovered/Resolved]
  - Phlebitis [Recovered/Resolved]
  - Liver function test abnormal [Unknown]
  - Pancreatitis [Recovered/Resolved]
  - Deep vein thrombosis [Not Recovered/Not Resolved]
  - Pancreatitis acute [Recovered/Resolved]

NARRATIVE: CASE EVENT DATE: 20120505
